FAERS Safety Report 13792884 (Version 1)
Quarter: 2017Q3

REPORT INFORMATION
  Report Type: Spontaneous
  Country: CN (occurrence: CN)
  Receive Date: 20170726
  Receipt Date: 20170726
  Transmission Date: 20171127
  Serious: Yes (Other)
  Sender: FDA-Public Use
  Company Number: CN-CORCEPT THERAPEUTICS INC.-CN-2017CRT000540

PATIENT
  Sex: Female

DRUGS (2)
  1. METHOTREXATE. [Suspect]
     Active Substance: METHOTREXATE
     Indication: ECTOPIC PREGNANCY
     Dosage: 25 MG, UNK FOR 2 DAYS
  2. MIFEPRISTONE [Suspect]
     Active Substance: MIFEPRISTONE
     Indication: ECTOPIC PREGNANCY
     Dosage: 200 MG, UNK FOR 3 DAYS

REACTIONS (3)
  - Bone marrow failure [Unknown]
  - Nausea [Unknown]
  - Vomiting [Unknown]
